FAERS Safety Report 11436892 (Version 1)
Quarter: 2015Q3

REPORT INFORMATION
  Report Type: Spontaneous
  Country: US (occurrence: US)
  Receive Date: 20150831
  Receipt Date: 20150831
  Transmission Date: 20151125
  Serious: No
  Sender: FDA-Public Use
  Company Number: US-PFIZER INC-2015285982

PATIENT
  Sex: Female

DRUGS (5)
  1. IRBESARTAN HCTZ [Concomitant]
     Active Substance: HYDROCHLOROTHIAZIDE\IRBESARTAN
     Indication: ARRHYTHMIA
     Dosage: UNK
  2. CELEBREX [Suspect]
     Active Substance: CELECOXIB
     Indication: OSTEOARTHRITIS
     Dosage: 200 MG, UNK
  3. DILTIAZEM [Concomitant]
     Active Substance: DILTIAZEM
     Indication: ARRHYTHMIA
     Dosage: 200 MG, UNK
  4. DIGOXIN. [Concomitant]
     Active Substance: DIGOXIN
     Indication: ARRHYTHMIA
     Dosage: 0.125 MG, UNK
  5. CELEBREX [Suspect]
     Active Substance: CELECOXIB
     Indication: FIBROMYALGIA

REACTIONS (3)
  - Drug ineffective [Unknown]
  - Pruritus generalised [Recovered/Resolved]
  - Off label use [Unknown]
